FAERS Safety Report 6090947-5 (Version None)
Quarter: 2009Q1

REPORT INFORMATION
  Report Type: 
  Country: None (occurrence: None)
  Receive Date: 20090225
  Receipt Date: 20090213
  Transmission Date: 20090719
  Serious: Yes (Other)
  Sender: FDA-Public Use
  Company Number: US-RB-009950-09

PATIENT
  Age: 80 Year
  Sex: Male

DRUGS (2)
  1. MUCINEX DM [Suspect]
     Route: 048
     Dates: start: 20090208
  2. VERAPAMIL [Concomitant]

REACTIONS (2)
  - BLOOD URINE [None]
  - DYSURIA [None]
